APPROVED DRUG PRODUCT: ETOPOSIDE
Active Ingredient: ETOPOSIDE
Strength: 20MG/ML
Dosage Form/Route: INJECTABLE;INJECTION
Application: A074983 | Product #001 | TE Code: AP
Applicant: FRESENIUS KABI USA LLC
Approved: Sep 30, 1998 | RLD: No | RS: Yes | Type: RX